FAERS Safety Report 6674053-4 (Version None)
Quarter: 2010Q1

REPORT INFORMATION
  Report Type: 
  Country: None (occurrence: None)
  Receive Date: 20100329
  Receipt Date: 20091102
  Transmission Date: 20100710
  Serious: Yes (Other)
  Sender: FDA-Public Use
  Company Number: 2009292689

PATIENT
  Sex: Female

DRUGS (2)
  1. GEODON [Suspect]
     Dosage: 50 MG, 2X/ DAY
  2. KLONOPIN [Concomitant]

REACTIONS (5)
  - ACTIVITIES OF DAILY LIVING IMPAIRED [None]
  - ORAL PAIN [None]
  - OROPHARYNGEAL PAIN [None]
  - RESTLESSNESS [None]
  - TRISMUS [None]
